FAERS Safety Report 7631182-6 (Version None)
Quarter: 2011Q3

REPORT INFORMATION
  Report Type: 
  Country: None (occurrence: None)
  Receive Date: 20110701
  Receipt Date: 20101118
  Transmission Date: 20111222
  Serious: Yes (Other)
  Sender: FDA-Public Use
  Company Number: 7028500

PATIENT
  Age: 51 Year
  Sex: Female
  Weight: 78 kg

DRUGS (15)
  1. VITAMIN B12 [Concomitant]
  2. GABAPENTIN [Concomitant]
  3. ASPIRIN [Concomitant]
  4. REBIF [Suspect]
     Indication: MULTIPLE SCLEROSIS
     Dosage: 44 MCG, 3 IN 1 WK, SUBCUTANEOUS, 22 MCG, 3 IN 1 WK, SUBCUTANEOUS
     Route: 058
     Dates: start: 20100322, end: 20100901
  5. REBIF [Suspect]
     Indication: MULTIPLE SCLEROSIS
     Dosage: 44 MCG, 3 IN 1 WK, SUBCUTANEOUS, 22 MCG, 3 IN 1 WK, SUBCUTANEOUS
     Route: 058
     Dates: start: 20101001
  6. CYMBALTA [Concomitant]
  7. PLAVIX [Concomitant]
  8. COREG [Concomitant]
  9. TRIAMCINOLONE [Concomitant]
  10. PRAVASTATIN [Concomitant]
  11. WELLBUTRIN [Concomitant]
  12. CLENIA (SULFACET /00677901/) [Concomitant]
  13. LEVOTHYROXINE SODIUM [Concomitant]
  14. AVAPRO [Concomitant]
  15. BACLOFEN [Concomitant]

REACTIONS (5)
  - DEPRESSION [None]
  - SUICIDAL IDEATION [None]
  - INFLUENZA LIKE ILLNESS [None]
  - INFLUENZA [None]
  - INJECTION SITE REACTION [None]
